FAERS Safety Report 5665124-X (Version None)
Quarter: 2008Q1

REPORT INFORMATION
  Report Type: 
  Country: None (occurrence: None)
  Receive Date: 20080314
  Receipt Date: 20080306
  Transmission Date: 20080703
  Serious: Yes (Death)
  Sender: FDA-Public Use
  Company Number: JP-PFIZER INC-2008021688

PATIENT
  Age: 73 Year
  Sex: Female

DRUGS (3)
  1. NORVASC [Suspect]
     Dosage: DAILY DOSE:5MG
     Route: 048
  2. CARNACULIN [Concomitant]
     Route: 048
  3. CINAL [Concomitant]
     Route: 048

REACTIONS (1)
  - SUDDEN DEATH [None]
